FAERS Safety Report 5620144-6 (Version None)
Quarter: 2008Q1

REPORT INFORMATION
  Report Type: 
  Country: None (occurrence: None)
  Receive Date: 20080208
  Receipt Date: 20080129
  Transmission Date: 20080703
  Serious: Yes (Hospitalization)
  Sender: FDA-Public Use
  Company Number: IT-ROCHE-544387

PATIENT
  Age: 39 Year
  Sex: Male

DRUGS (2)
  1. FUZEON [Suspect]
     Indication: ACQUIRED IMMUNODEFICIENCY SYNDROME
     Dosage: FORM REPORTED AS VIAL
     Route: 058
     Dates: start: 20080108, end: 20080108
  2. FUZEON [Suspect]
     Dosage: FORM REPORTED AS VIAL
     Route: 058
     Dates: start: 20080121, end: 20080121

REACTIONS (4)
  - DIARRHOEA [None]
  - FEBRILE CONVULSION [None]
  - PHARYNGITIS [None]
  - PYREXIA [None]
